FAERS Safety Report 20942225 (Version 1)
Quarter: 2022Q2

REPORT INFORMATION
  Report Type: Spontaneous
  Country: RO (occurrence: RO)
  Receive Date: 20220610
  Receipt Date: 20220610
  Transmission Date: 20220720
  Serious: Yes (Life-Threatening, Hospitalization, Other)
  Sender: FDA-Public Use
  Company Number: RO-AstraZeneca-2022A143019

PATIENT
  Age: 71 Year
  Sex: Male
  Weight: 68 kg

DRUGS (3)
  1. CARBOPLATIN [Suspect]
     Active Substance: CARBOPLATIN
     Indication: Product used for unknown indication
     Dosage: 450MG
     Route: 065
     Dates: start: 202201
  2. ETOPOSIDE [Suspect]
     Active Substance: ETOPOSIDE
     Indication: Product used for unknown indication
     Dosage: 180 MILLIGRAM DAILY; 180MG/DAY -DAY 1-3
     Route: 065
     Dates: start: 202201
  3. DURVALUMAB [Suspect]
     Active Substance: DURVALUMAB
     Indication: Small cell lung cancer extensive stage
     Dosage: 1500MG, FREQUENCY TIME 3WEEKS
     Route: 042
     Dates: start: 20220318

REACTIONS (2)
  - Epistaxis [Recovered/Resolved]
  - Pancytopenia [Recovered/Resolved]

NARRATIVE: CASE EVENT DATE: 20220323
